FAERS Safety Report 7591686-1 (Version None)
Quarter: 2011Q3

REPORT INFORMATION
  Report Type: 
  Country: None (occurrence: None)
  Receive Date: 20110706
  Receipt Date: 20110622
  Transmission Date: 20111222
  Serious: Yes (Hospitalization, Other)
  Sender: FDA-Public Use
  Company Number: US-BAYER-2011-055004

PATIENT
  Age: 82 Year
  Sex: Male
  Weight: 90.2 kg

DRUGS (9)
  1. CELECOXIB [Suspect]
     Indication: RHEUMATOID ARTHRITIS
  2. HYDROCHLOROTHIAZIDE [Concomitant]
  3. ZETIA [Concomitant]
     Dosage: UNK
     Dates: start: 20040101
  4. PROTONIX [Suspect]
     Dosage: UNK
     Dates: start: 20110517, end: 20110519
  5. PRAVACHOL [Concomitant]
     Dosage: UNK
     Dates: start: 20040101
  6. NAPROXEN SODIUM [Suspect]
     Indication: ARTHRITIS
     Dosage: 500 MG, BID
     Route: 048
     Dates: start: 20110422, end: 20110514
  7. BENAZEPRIL HYDROCHLORIDE [Concomitant]
     Dosage: UNK
     Dates: start: 20040101
  8. NEXIUM [Concomitant]
     Dosage: UNK
     Dates: start: 20071003
  9. CELECOXIB [Suspect]
     Indication: OSTEOARTHRITIS
     Dosage: UNK UNK, TID
     Route: 048
     Dates: start: 20071003, end: 20110421

REACTIONS (6)
  - ABDOMINAL PAIN [None]
  - FAECES DISCOLOURED [None]
  - DUODENAL ULCER [None]
  - NAUSEA [None]
  - VOMITING [None]
  - RENAL FAILURE ACUTE [None]
